FAERS Safety Report 10537865 (Version 3)
Quarter: 2014Q4

REPORT INFORMATION
  Report Type: Spontaneous
  Country: US (occurrence: US)
  Receive Date: 20141023
  Receipt Date: 20141201
  Transmission Date: 20150529
  Serious: No
  Sender: FDA-Public Use
  Company Number: US-PFIZER INC-2014287735

PATIENT
  Age: 70 Year
  Sex: Female

DRUGS (1)
  1. XELJANZ [Suspect]
     Active Substance: TOFACITINIB CITRATE
     Indication: RHEUMATOID ARTHRITIS
     Dosage: 5 MG, ALTERNATE DAY
     Route: 048
     Dates: start: 20140910, end: 20141015

REACTIONS (7)
  - Drug dose omission [Unknown]
  - Intercepted medication error [Unknown]
  - Diarrhoea [Unknown]
  - Tremor [Recovering/Resolving]
  - Presyncope [Recovering/Resolving]
  - Depression [Unknown]
  - Nausea [Recovering/Resolving]

NARRATIVE: CASE EVENT DATE: 20140910
